FAERS Safety Report 8734291 (Version 2)
Quarter: 2012Q4

REPORT INFORMATION
  Report Type: 
  Country: US (occurrence: US)
  Receive Date: 20120821
  Receipt Date: 20120907
  Transmission Date: 20130627
  Serious: No
  Sender: FDA-Public Use
  Company Number: US-ASTRAZENECA-2012SE57257

PATIENT
  Age: 56 Year
  Sex: Male
  Weight: 86.2 kg

DRUGS (4)
  1. CRESTOR [Suspect]
     Indication: HYPERLIPIDAEMIA
     Route: 048
     Dates: start: 2005, end: 2012
  2. CRESTOR [Suspect]
     Indication: HYPERLIPIDAEMIA
     Route: 048
     Dates: start: 2012, end: 2012
  3. ASPIRIN [Concomitant]
  4. VITAMIN D [Concomitant]

REACTIONS (3)
  - Supraventricular extrasystoles [Recovered/Resolved]
  - Cough [Unknown]
  - Drug dose omission [Unknown]
